FAERS Safety Report 22203328 (Version 1)
Quarter: 2023Q2

REPORT INFORMATION
  Report Type: Spontaneous
  Country: US (occurrence: None)
  Receive Date: 20230412
  Receipt Date: 20230412
  Transmission Date: 20230721
  Serious: Yes (Hospitalization)
  Sender: FDA-Public Use
  Company Number: None

PATIENT
  Sex: Male

DRUGS (2)
  1. TACROLIMUS [Suspect]
     Active Substance: TACROLIMUS
     Indication: Renal transplant
     Dosage: 0.5 MG ORAL??TAKE 1 CAPSULE BY MOUTH ALONG WITH TWO 1 MG CAPSULES TO EQUAL 2.5 MG TOTAL EVERY MORNIN
     Route: 048
     Dates: start: 20210216
  2. MYCOPHENOLIC ACID DR TAB [Concomitant]

REACTIONS (2)
  - COVID-19 [None]
  - Therapy interrupted [None]
